FAERS Safety Report 7489297-1 (Version None)
Quarter: 2011Q2

REPORT INFORMATION
  Report Type: 
  Country: None (occurrence: None)
  Receive Date: 20110518
  Receipt Date: 20110509
  Transmission Date: 20111010
  Serious: Yes (Death, Other)
  Sender: FDA-Public Use
  Company Number: US-AMGEN-QUU424777

PATIENT
  Age: 83 Year
  Sex: Male
  Weight: 74.83 kg

DRUGS (2)
  1. NPLATE [Suspect]
     Indication: THROMBOCYTOPENIA
  2. NPLATE [Suspect]
     Indication: IDIOPATHIC THROMBOCYTOPENIC PURPURA
     Dosage: 10 A?G/KG, QWK
     Route: 058
     Dates: start: 20090604, end: 20100126

REACTIONS (3)
  - BONE MARROW RETICULIN FIBROSIS [None]
  - ACUTE MYELOID LEUKAEMIA [None]
  - MYELODYSPLASTIC SYNDROME [None]
